FAERS Safety Report 11537973 (Version 2)
Quarter: 2015Q4

REPORT INFORMATION
  Report Type: Spontaneous
  Country: CA (occurrence: CA)
  Receive Date: 20150922
  Receipt Date: 20151105
  Transmission Date: 20160304
  Serious: Yes (Other)
  Sender: FDA-Public Use
  Company Number: CA-TEVA-594883USA

PATIENT
  Age: 68 Year
  Sex: Female

DRUGS (2)
  1. TEVA-SALBUTAMOL HFA [Suspect]
     Active Substance: ALBUTEROL
     Indication: CHRONIC OBSTRUCTIVE PULMONARY DISEASE
     Dosage: 100 MCG/ACT METERED DOSE INHALER, INHALE 2 PUFFS AS NEEDED
     Route: 055
     Dates: start: 2012
  2. SYMBICORT [Concomitant]
     Active Substance: BUDESONIDE\FORMOTEROL FUMARATE DIHYDRATE

REACTIONS (4)
  - Choking [Recovered/Resolved]
  - Cough [Recovered/Resolved]
  - Product container issue [Unknown]
  - Drug ineffective [Unknown]
